FAERS Safety Report 5523650-8 (Version None)
Quarter: 2007Q4

REPORT INFORMATION
  Report Type: 
  Country: None (occurrence: None)
  Receive Date: 20071121
  Receipt Date: 20071112
  Transmission Date: 20080405
  Serious: Yes (Hospitalization, Other)
  Sender: FDA-Public Use
  Company Number: US-ELI_LILLY_AND_COMPANY-US200710001996

PATIENT
  Sex: Female

DRUGS (3)
  1. FORTEO [Suspect]
     Indication: FIBROMYALGIA
     Dosage: UNK, UNK
     Dates: start: 20070601, end: 20070101
  2. PROZAC [Suspect]
     Indication: DEPRESSION
     Dosage: 60 MG, DAILY (1/D)
  3. BETAGAN [Concomitant]
     Indication: EYE DISORDER
     Dosage: 0.05 %, 2/D
     Route: 047

REACTIONS (4)
  - AGITATION [None]
  - CONFUSIONAL STATE [None]
  - LIGAMENT SPRAIN [None]
  - STATUS EPILEPTICUS [None]
